FAERS Safety Report 4334974-4 (Version None)
Quarter: 2004Q2

REPORT INFORMATION
  Report Type: 
  Country: None (occurrence: None)
  Receive Date: 20040408
  Receipt Date: 20040112
  Transmission Date: 20050107
  Serious: Yes (Life-Threatening)
  Sender: FDA-Public Use
  Company Number: DE-ROCHE-355828

PATIENT
  Sex: Male
  Weight: 69 kg

DRUGS (2)
  1. PEGASYS [Suspect]
     Indication: HEPATITIS C
     Dosage: NO FREQUENCY SPECIFIED.
     Route: 058
     Dates: start: 20040110, end: 20040111
  2. REBETOL [Suspect]
     Indication: HEPATITIS C
     Route: 048
     Dates: start: 20040110, end: 20040111

REACTIONS (1)
  - HYPERSENSITIVITY [None]
